FAERS Safety Report 7864474-6 (Version None)
Quarter: 2011Q4

REPORT INFORMATION
  Report Type: 
  Country: None (occurrence: None)
  Receive Date: 20111028
  Receipt Date: 20111020
  Transmission Date: 20120403
  Serious: Yes (Hospitalization)
  Sender: FDA-Public Use
  Company Number: PHHY2011BR86014

PATIENT
  Age: 63 Year
  Sex: Female

DRUGS (7)
  1. FORMOTEROL FUMARATE [Suspect]
     Indication: FIBROSIS
  2. FORMOTEROL FUMARATE [Suspect]
     Indication: EMPHYSEMA
  3. SPIRIVA [Concomitant]
     Indication: EMPHYSEMA
     Dosage: 2 INHALATIONS DAILY FOR 5-6 YEARS
  4. VANDER [Concomitant]
     Indication: EMPHYSEMA
     Dosage: 10 ML, BID
     Route: 048
  5. PREDSIN [Concomitant]
     Indication: EMPHYSEMA
     Dosage: 10 MG, QD
     Route: 048
  6. FORMOTEROL FUMARATE [Suspect]
     Indication: BRONCHITIS
     Dosage: 1 DF, BID (1 CAPSULE OF TREATMENT 1 + 1 CAPSULE OF TREAMENT 2)
  7. SPIRIVA [Concomitant]
     Indication: BRONCHITIS

REACTIONS (4)
  - LUNG DISORDER [None]
  - FIBROSIS [None]
  - BRONCHITIS [None]
  - EMPHYSEMA [None]
